FAERS Safety Report 25438587 (Version 2)
Quarter: 2025Q3

REPORT INFORMATION
  Report Type: Spontaneous
  Country: CA (occurrence: CA)
  Receive Date: 20250616
  Receipt Date: 20250702
  Transmission Date: 20251020
  Serious: No
  Sender: UCB
  Company Number: CA-UCBSA-2025032623

PATIENT
  Sex: Female

DRUGS (1)
  1. NEUPRO [Suspect]
     Active Substance: ROTIGOTINE
     Indication: Parkinson^s disease
     Dosage: 20 MILLIGRAM, ONCE DAILY (QD)
     Route: 062
     Dates: start: 2021

REACTIONS (5)
  - Adverse event [Unknown]
  - Erythema [Not Recovered/Not Resolved]
  - Product adhesion issue [Unknown]
  - Drug ineffective [Unknown]
  - Incorrect dose administered [Unknown]

NARRATIVE: CASE EVENT DATE: 20250301
